FAERS Safety Report 16534216 (Version 1)
Quarter: 2019Q3

REPORT INFORMATION
  Report Type: Spontaneous
  Country: CZ (occurrence: CZ)
  Receive Date: 20190705
  Receipt Date: 20190705
  Transmission Date: 20191004
  Serious: Yes (Life-Threatening, Hospitalization, Other)
  Sender: FDA-Public Use
  Company Number: CZ-ABBVIE-19K-217-2843641-00

PATIENT
  Age: 4 Year
  Sex: Male
  Weight: 29 kg

DRUGS (6)
  1. METOJECT PEN [Suspect]
     Active Substance: METHOTREXATE
     Indication: JUVENILE IDIOPATHIC ARTHRITIS
     Route: 058
     Dates: start: 201808, end: 20190419
  2. ACIDUM FOLICUM [Concomitant]
     Active Substance: FOLIC ACID
     Indication: PROPHYLAXIS
     Dosage: ONCE A WEEK AFTER THE METHOTREXATE
     Route: 048
     Dates: start: 20160803, end: 20190421
  3. HUMIRA [Suspect]
     Active Substance: ADALIMUMAB
     Indication: IRIDOCYCLITIS
     Route: 058
     Dates: start: 20190324, end: 20190421
  4. HUMIRA [Suspect]
     Active Substance: ADALIMUMAB
     Indication: JUVENILE IDIOPATHIC ARTHRITIS
     Route: 058
     Dates: start: 20180201, end: 20190324
  5. METOJECT PEN [Suspect]
     Active Substance: METHOTREXATE
     Indication: IRIDOCYCLITIS
     Route: 058
     Dates: start: 20160801, end: 201808
  6. HUMIRA [Suspect]
     Active Substance: ADALIMUMAB
     Route: 058
     Dates: start: 20161111, end: 20180201

REACTIONS (13)
  - Motor dysfunction [Recovered/Resolved]
  - Agitation [Recovered/Resolved]
  - Monoparesis [Recovered/Resolved]
  - Dysarthria [Recovered/Resolved]
  - Seizure [Recovered/Resolved]
  - Motor dysfunction [Recovered/Resolved]
  - Seizure [Recovered/Resolved]
  - Monoparesis [Recovered/Resolved]
  - Dysarthria [Recovered/Resolved]
  - Somnolence [Recovered/Resolved]
  - Facial paresis [Recovered/Resolved]
  - Demyelination [Recovering/Resolving]
  - Noninfective encephalitis [Recovering/Resolving]

NARRATIVE: CASE EVENT DATE: 20190402
